FAERS Safety Report 21089219 (Version 1)
Quarter: 2022Q3

REPORT INFORMATION
  Report Type: Spontaneous
  Country: US (occurrence: None)
  Receive Date: 20220715
  Receipt Date: 20220715
  Transmission Date: 20221026
  Serious: Yes (Death)
  Sender: FDA-Public Use
  Company Number: None

PATIENT
  Sex: Male
  Weight: 113.4 kg

DRUGS (19)
  1. REVLIMID [Suspect]
     Active Substance: LENALIDOMIDE
     Indication: Plasma cell myeloma
     Dosage: OTHER FREQUENCY : 21 ON/7 OFF;?
     Route: 048
     Dates: start: 20171003
  2. ATORVASTATIN 20 MG TAB [Concomitant]
  3. BUSPIRONE 10 MG TAB [Concomitant]
  4. BUTALB-ACETAMIN - CAFF 50-300-40 CA [Concomitant]
  5. BUTALBITAL- ASA- CAFFEINE CAP [Concomitant]
  6. butalbital-acetaminophen-caffeine 50 mg-300 mg-40 mg capsule [Concomitant]
  7. butalbital-acetaminophen-caffeine 50 mg-325 mg-40 mg tablet [Concomitant]
  8. Cholestyramine Light 4 gram oral powde [Concomitant]
  9. FIORICET 50-300-40 MG CAP [Concomitant]
  10. fluoxetine 10 mg tablet [Concomitant]
  11. FLUOXETINE 20 MG CAP [Concomitant]
  12. GABAPENTIN 600 MG TABLET [Concomitant]
  13. HYDROXYZINE HCL 50 MG TAB [Concomitant]
  14. lisinopril 30 mg tablet [Concomitant]
  15. lorazepam 1 mg tablet [Concomitant]
  16. METHOCARBAMOL 750 MG TAB [Concomitant]
  17. olanzapine 7.5 mg tablet [Concomitant]
  18. OMEPRAZOLE [Concomitant]
     Active Substance: OMEPRAZOLE
  19. ondansetron 8 mg disintegrating tablet [Concomitant]

REACTIONS (1)
  - Death [None]
